FAERS Safety Report 6218108-7 (Version None)
Quarter: 2009Q2

REPORT INFORMATION
  Report Type: 
  Country: None (occurrence: None)
  Receive Date: 20090608
  Receipt Date: 20090527
  Transmission Date: 20091009
  Serious: Yes (Hospitalization)
  Sender: FDA-Public Use
  Company Number: PHHY2009MX20093

PATIENT
  Age: 59 Year
  Sex: Female

DRUGS (9)
  1. ACLASTA [Suspect]
     Indication: OSTEOPOROSIS
     Dosage: 5 MG/100 ML
     Dates: start: 20070901
  2. ACLASTA [Suspect]
     Dosage: UNK
     Dates: start: 20080601
  3. ANGIOTROFIN (DILTIAZEM HYDROCHLORIDE) [Concomitant]
     Indication: CARDIOMYOPATHY
  4. ACETYLSALICYLIC ACID [Concomitant]
  5. LIPITOR [Concomitant]
  6. MELOXICAM [Concomitant]
  7. METHOCARBAMOL [Concomitant]
  8. ACETAMINOPHEN [Concomitant]
  9. GLUCOSAMINE [Concomitant]
     Dosage: UNK

REACTIONS (3)
  - CARDIAC FAILURE [None]
  - CATHETERISATION CARDIAC [None]
  - CHEST PAIN [None]
